FAERS Safety Report 7811473-6 (Version None)
Quarter: 2011Q4

REPORT INFORMATION
  Report Type: 
  Country: None (occurrence: None)
  Receive Date: 20111013
  Receipt Date: 20111003
  Transmission Date: 20120403
  Serious: Yes (Hospitalization)
  Sender: FDA-Public Use
  Company Number: US-JNJFOC-20111001703

PATIENT
  Sex: Male
  Weight: 107.96 kg

DRUGS (6)
  1. STELARA [Suspect]
     Route: 058
     Dates: start: 20101117
  2. METHOTREXATE [Concomitant]
     Indication: PROPHYLAXIS
     Dates: start: 20110309, end: 20110316
  3. STELARA [Suspect]
     Indication: PSORIASIS
     Route: 058
     Dates: start: 20110817
  4. CRESTOR [Concomitant]
     Indication: HYPERCHOLESTEROLAEMIA
  5. STELARA [Suspect]
     Route: 058
     Dates: start: 20110309
  6. LOVAZA [Concomitant]
     Indication: HYPERTENSION

REACTIONS (1)
  - GUILLAIN-BARRE SYNDROME [None]
